FAERS Safety Report 9580119 (Version 1)
Quarter: 2013Q3

REPORT INFORMATION
  Report Type: Spontaneous
  Country: US (occurrence: None)
  Receive Date: 20130916
  Receipt Date: 20130916
  Transmission Date: 20140515
  Serious: Yes (Other)
  Sender: FDA-Public Use
  Company Number: JPI-P-029997

PATIENT
  Age: 70 Year
  Sex: Male
  Weight: 92.99 kg

DRUGS (7)
  1. XYREM [Suspect]
     Indication: NARCOLEPSY
     Route: 048
     Dates: start: 20130130, end: 2013
  2. XYREM [Suspect]
     Indication: SOMNOLENCE
     Route: 048
     Dates: start: 20130130, end: 2013
  3. LISINOPRIL/HCTZ [Concomitant]
  4. AMLODIPINE [Concomitant]
  5. LOVASTATIN [Concomitant]
  6. OMEPRAZOLE [Concomitant]
  7. METHYPHENIDATE HYDROCHLORIDE [Concomitant]

REACTIONS (3)
  - Hypertension [None]
  - Condition aggravated [None]
  - Feeling jittery [None]
